FAERS Safety Report 6531459-1 (Version None)
Quarter: 2009Q4

REPORT INFORMATION
  Report Type: 
  Country: None (occurrence: None)
  Receive Date: 20091222
  Receipt Date: 20091024
  Transmission Date: 20100525
  Serious: No
  Sender: FDA-Public Use
  Company Number: ALL1-2009-03358

PATIENT
  Age: 12 Year
  Sex: Female
  Weight: 61.2 kg

DRUGS (7)
  1. VYVANSE [Suspect]
     Indication: ATTENTION DEFICIT/HYPERACTIVITY DISORDER
     Dosage: 1X/DAY:QD, ORAL ; 50 MG, 1X/DAY:QD, ORAL
     Route: 048
     Dates: end: 20090101
  2. VYVANSE [Suspect]
     Indication: DEPRESSION
     Dosage: 1X/DAY:QD, ORAL ; 50 MG, 1X/DAY:QD, ORAL
     Route: 048
     Dates: end: 20090101
  3. VYVANSE [Suspect]
     Indication: ATTENTION DEFICIT/HYPERACTIVITY DISORDER
     Dosage: 1X/DAY:QD, ORAL ; 50 MG, 1X/DAY:QD, ORAL
     Route: 048
     Dates: start: 20090101
  4. VYVANSE [Suspect]
     Indication: DEPRESSION
     Dosage: 1X/DAY:QD, ORAL ; 50 MG, 1X/DAY:QD, ORAL
     Route: 048
     Dates: start: 20090101
  5. CELEXA [Suspect]
     Indication: DEPRESSION
     Dosage: ORAL ; ORAL
     Route: 048
     Dates: end: 20090101
  6. CELEXA [Suspect]
     Indication: DEPRESSION
     Dosage: ORAL ; ORAL
     Route: 048
     Dates: start: 20090101
  7. VISTARIL /00058402/ (HYDROXYZINE HYDROCHLORIDE) [Concomitant]

REACTIONS (7)
  - ANXIETY [None]
  - DEPRESSION [None]
  - DISTURBANCE IN SOCIAL BEHAVIOUR [None]
  - INTENTIONAL SELF-INJURY [None]
  - ONYCHOPHAGIA [None]
  - PSYCHOMOTOR HYPERACTIVITY [None]
  - TRICHOTILLOMANIA [None]
